FAERS Safety Report 13540023 (Version 1)
Quarter: 2017Q2

REPORT INFORMATION
  Report Type: Report from Study
  Country: US (occurrence: US)
  Receive Date: 20170512
  Receipt Date: 20170512
  Transmission Date: 20170830
  Serious: Yes (Hospitalization)
  Sender: FDA-Public Use
  Company Number: US-ALEXION PHARMACEUTICALS INC.-A201704632

PATIENT
  Age: 1 Year
  Sex: Female
  Weight: 7 kg

DRUGS (15)
  1. ZANTAC [Concomitant]
     Active Substance: RANITIDINE HYDROCHLORIDE
     Indication: GASTROOESOPHAGEAL REFLUX DISEASE
     Dosage: 0.8 ML, TID
     Route: 050
     Dates: start: 20151217, end: 20161201
  2. AMOXICILLIN. [Concomitant]
     Active Substance: AMOXICILLIN
     Indication: PNEUMONIA
     Dosage: UNK
     Route: 050
     Dates: start: 20161130, end: 20161210
  3. PYRIDOXINE [Concomitant]
     Active Substance: PYRIDOXINE
     Indication: GASTRITIS PROPHYLAXIS
     Dosage: 50 MG, QD
     Route: 048
     Dates: start: 20160105
  4. TRIAMCINOLONE [Concomitant]
     Active Substance: TRIAMCINOLONE
     Indication: PROPHYLAXIS
     Dosage: 1 APPLICATION, PRN
     Route: 061
     Dates: start: 20160224
  5. IBUPROFEN. [Concomitant]
     Active Substance: IBUPROFEN
     Indication: PYREXIA
     Dosage: 40 MG, PRN
     Route: 048
     Dates: start: 20161201, end: 20161202
  6. IBUPROFEN. [Concomitant]
     Active Substance: IBUPROFEN
     Dosage: 77 MG, PRN
     Route: 048
     Dates: start: 20161201, end: 20161201
  7. ERYTHROMYCIN ETHYLSUCCINATE. [Concomitant]
     Active Substance: ERYTHROMYCIN ETHYLSUCCINATE
     Indication: PREMEDICATION
     Dosage: 0.6 MG, QID
     Route: 050
     Dates: start: 20160923, end: 20161130
  8. ERYTHROMYCIN ETHYLSUCCINATE. [Concomitant]
     Active Substance: ERYTHROMYCIN ETHYLSUCCINATE
     Dosage: 12 MG, QID
     Route: 050
     Dates: start: 20161201
  9. STRENSIQ [Suspect]
     Active Substance: ASFOTASE ALFA
     Indication: HYPOPHOSPHATASIA
     Dosage: 2 MG/KG, TIW
     Route: 058
     Dates: start: 20151125
  10. ZANTAC [Concomitant]
     Active Substance: RANITIDINE HYDROCHLORIDE
     Dosage: 21 MG, TID
     Route: 050
     Dates: start: 20161201
  11. POLY-VI-SOL WITH IRON [Concomitant]
     Active Substance: IRON\VITAMINS
     Indication: VITAMIN D DECREASED
     Dosage: 0.2 ML, BID
     Route: 050
     Dates: start: 20151223
  12. ACETAMINOPHEN. [Concomitant]
     Active Substance: ACETAMINOPHEN
     Indication: PYREXIA
     Route: 048
     Dates: start: 20161201, end: 20161201
  13. ACETAMINOPHEN. [Concomitant]
     Active Substance: ACETAMINOPHEN
     Indication: MYALGIA
     Dosage: 45 MG, QID
     Route: 042
     Dates: start: 20160115, end: 20170117
  14. AQUAPHOR                           /00298701/ [Concomitant]
     Indication: DERMATITIS
     Dosage: 1 APPLICATION, TID
     Route: 061
     Dates: start: 20151231
  15. PREVACID [Concomitant]
     Active Substance: LANSOPRAZOLE
     Indication: GASTROOESOPHAGEAL REFLUX DISEASE
     Dosage: 7.5 MG, QD
     Route: 048
     Dates: start: 2016

REACTIONS (1)
  - Pneumonia [Recovered/Resolved with Sequelae]

NARRATIVE: CASE EVENT DATE: 20161201
